FAERS Safety Report 17257171 (Version 4)
Quarter: 2020Q2

REPORT INFORMATION
  Report Type: Report from Study
  Country: CA (occurrence: CA)
  Receive Date: 20200110
  Receipt Date: 20200408
  Transmission Date: 20200713
  Serious: Yes (Hospitalization, Other)
  Sender: FDA-Public Use
  Company Number: NVSC2019CA042899

PATIENT
  Age: 66 Year
  Sex: Male

DRUGS (4)
  1. COSENTYX [Suspect]
     Active Substance: SECUKINUMAB
     Indication: PSORIATIC ARTHROPATHY
     Dosage: 300 MG, QMO (SENSOREADY PEN)
     Route: 058
     Dates: start: 20180311
  2. COSENTYX [Suspect]
     Active Substance: SECUKINUMAB
     Dosage: 450, (150 MG Q 10 HOURS/DAYS) (SENSOREADY PEN)
     Route: 058
     Dates: start: 2019
  3. METHOTREXATE. [Concomitant]
     Active Substance: METHOTREXATE
     Indication: PRODUCT USED FOR UNKNOWN INDICATION
     Dosage: 1 DF, QW
     Route: 058
     Dates: start: 201205
  4. COSENTYX [Suspect]
     Active Substance: SECUKINUMAB
     Dosage: 300 MG, QMO
     Route: 058
     Dates: start: 2019

REACTIONS (7)
  - Joint stiffness [Unknown]
  - Fall [Unknown]
  - Pain [Unknown]
  - Post procedural infection [Recovered/Resolved]
  - Arthralgia [Unknown]
  - Hip fracture [Unknown]
  - Synovitis [Unknown]

NARRATIVE: CASE EVENT DATE: 201911
